FAERS Safety Report 25071048 (Version 6)
Quarter: 2025Q3

REPORT INFORMATION
  Report Type: Spontaneous
  Country: US (occurrence: US)
  Receive Date: 20250312
  Receipt Date: 20250828
  Transmission Date: 20251021
  Serious: Yes (Other)
  Sender: INTRABIO
  Company Number: US-IBO-202500054

PATIENT
  Age: 17 Year
  Sex: Female
  Weight: 58 kg

DRUGS (14)
  1. AQNEURSA [Suspect]
     Active Substance: LEVACETYLLEUCINE
     Indication: Product used for unknown indication
     Route: 065
     Dates: start: 20241225
  2. LAMICTAL [Concomitant]
     Active Substance: LAMOTRIGINE
     Indication: Product used for unknown indication
     Route: 065
  3. LAMICTAL [Concomitant]
     Active Substance: LAMOTRIGINE
     Indication: Product used for unknown indication
     Dosage: INCREASED DOSE
     Route: 065
  4. LORYNA [Concomitant]
     Active Substance: DROSPIRENONE\ETHINYL ESTRADIOL
     Indication: Product used for unknown indication
     Route: 065
  5. FLUOXETINE [Concomitant]
     Active Substance: FLUOXETINE HYDROCHLORIDE
     Indication: Product used for unknown indication
     Route: 065
  6. ADRABETADEX [Concomitant]
     Active Substance: ADRABETADEX
     Indication: Product used for unknown indication
     Route: 065
  7. ADRABETADEX [Concomitant]
     Active Substance: ADRABETADEX
     Indication: Product used for unknown indication
     Route: 065
  8. CALCIUM [Concomitant]
     Active Substance: CALCIUM
     Indication: Product used for unknown indication
     Route: 065
  9. VITAMIN B COMPLEX [Concomitant]
     Active Substance: CYANOCOBALAMIN\DEXPANTHENOL\NIACINAMIDE\PYRIDOXINE HYDROCHLORIDE\RIBOFLAVIN 5^-PHOSPHATE SODIUM\THIA
     Indication: Product used for unknown indication
     Route: 065
  10. CURCUMIN [Concomitant]
     Active Substance: CURCUMIN
     Indication: Product used for unknown indication
     Route: 065
  11. CREATINE [Concomitant]
     Active Substance: CREATINE
     Indication: Product used for unknown indication
     Route: 065
  12. Magnesium-L-Threonate [Concomitant]
     Indication: Product used for unknown indication
     Route: 065
  13. cyclodextrin [Concomitant]
     Indication: Product used for unknown indication
     Route: 065
  14. VERSED [Concomitant]
     Active Substance: MIDAZOLAM HYDROCHLORIDE
     Indication: Product used for unknown indication
     Route: 065

REACTIONS (7)
  - Incorrect dose administered [Unknown]
  - Mood altered [Unknown]
  - Gait disturbance [Unknown]
  - Generalised tonic-clonic seizure [Unknown]
  - Frustration tolerance decreased [Unknown]
  - Sleep disorder [Unknown]
  - Anger [Unknown]

NARRATIVE: CASE EVENT DATE: 20250205
